FAERS Safety Report 14178278 (Version 4)
Quarter: 2020Q2

REPORT INFORMATION
  Report Type: Report from Study
  Country: US (occurrence: US)
  Receive Date: 20171110
  Receipt Date: 20200507
  Transmission Date: 20200713
  Serious: Yes (Death, Hospitalization, Other)
  Sender: FDA-Public Use
  Company Number: US-ACADIA PHARMACEUTICALS INC.-ACA-2017-005398

PATIENT
  Age: 85 Year
  Sex: Male

DRUGS (6)
  1. NUPLAZID [Suspect]
     Active Substance: PIMAVANSERIN TARTRATE
     Indication: PARKINSON^S DISEASE PSYCHOSIS
     Dosage: 17 MG, QD
     Route: 048
     Dates: start: 20170801, end: 20170814
  2. NUPLAZID [Suspect]
     Active Substance: PIMAVANSERIN TARTRATE
     Indication: HALLUCINATION
     Dosage: 34 MG, QD
     Route: 048
     Dates: start: 20170906, end: 201709
  3. NUPLAZID [Suspect]
     Active Substance: PIMAVANSERIN TARTRATE
     Indication: DELUSION
     Dosage: 34 MG, ONCE NIGHTLY
     Route: 048
     Dates: start: 20170916, end: 201709
  4. NUPLAZID [Suspect]
     Active Substance: PIMAVANSERIN TARTRATE
     Indication: DEMENTIA
     Dosage: 51 MG, 1 TABLET IN THE MORNING AND 2 TABLETS AT BEDTIME
     Route: 048
     Dates: start: 20170928
  5. NUPLAZID [Suspect]
     Active Substance: PIMAVANSERIN TARTRATE
     Indication: DEMENTIA
     Dosage: 34 MILLIGRAM, ONCE NIGHTLY
     Route: 048
  6. NUPLAZID [Suspect]
     Active Substance: PIMAVANSERIN TARTRATE
     Dosage: 34 MG, QD
     Route: 048

REACTIONS (9)
  - Hallucination [Unknown]
  - Prescribed underdose [Unknown]
  - Overdose [Unknown]
  - Inappropriate schedule of product administration [Unknown]
  - Gait disturbance [Unknown]
  - Death [Fatal]
  - Hospitalisation [Unknown]
  - Arterial stenosis [Unknown]
  - Fall [Unknown]

NARRATIVE: CASE EVENT DATE: 201709
